FAERS Safety Report 24108646 (Version 1)
Quarter: 2024Q3

REPORT INFORMATION
  Report Type: Report from Study
  Country: US (occurrence: None)
  Receive Date: 20240718
  Receipt Date: 20240718
  Transmission Date: 20241016
  Serious: Yes (Hospitalization)
  Sender: ASTRAZENECA
  Company Number: 2024A158609

PATIENT
  Age: 22645 Day
  Sex: Female
  Weight: 99 kg

DRUGS (1)
  1. TRUQAP [Suspect]
     Active Substance: CAPIVASERTIB
     Indication: Breast cancer female
     Route: 048
     Dates: start: 20240108

REACTIONS (2)
  - Hypertension [Unknown]
  - Headache [Unknown]
